FAERS Safety Report 9530145 (Version 1)
Quarter: 2013Q3

REPORT INFORMATION
  Report Type: Spontaneous
  Country: US (occurrence: US)
  Receive Date: 20130917
  Receipt Date: 20130917
  Transmission Date: 20140515
  Serious: Yes (Other)
  Sender: FDA-Public Use
  Company Number: US-ACTAVIS-2013-15995

PATIENT
  Sex: Female
  Weight: 75 kg

DRUGS (1)
  1. DOXYCYCLINE (WATSON LABORATORIES) [Suspect]
     Indication: SINUSITIS
     Dosage: 50 MG, BID
     Route: 048
     Dates: start: 2008, end: 2012

REACTIONS (3)
  - Liver function test abnormal [Unknown]
  - Red blood cell sedimentation rate increased [Unknown]
  - Drug administration error [Unknown]
